FAERS Safety Report 7541794-6 (Version None)
Quarter: 2011Q2

REPORT INFORMATION
  Report Type: 
  Country: None (occurrence: None)
  Receive Date: 20110524
  Receipt Date: 20110316
  Transmission Date: 20111010
  Serious: No
  Sender: FDA-Public Use
  Company Number: 029660

PATIENT
  Sex: Male

DRUGS (1)
  1. CIMZIA [Suspect]
     Indication: CROHN'S DISEASE
     Dosage: 400 MG 1X/MONTH SUBCUTANEOUS
     Route: 058
     Dates: start: 20090101

REACTIONS (10)
  - CHILLS [None]
  - PAIN IN EXTREMITY [None]
  - PYREXIA [None]
  - ABDOMINAL DISTENSION [None]
  - FEELING ABNORMAL [None]
  - ARTHRALGIA [None]
  - PERIPHERAL COLDNESS [None]
  - PAIN [None]
  - HEADACHE [None]
  - FLATULENCE [None]
